FAERS Safety Report 15213469 (Version 2)
Quarter: 2019Q1

REPORT INFORMATION
  Report Type: Spontaneous
  Country: US (occurrence: US)
  Receive Date: 20180730
  Receipt Date: 20190325
  Transmission Date: 20190417
  Serious: No
  Sender: FDA-Public Use
  Company Number: US-PFIZER INC-2018299943

PATIENT
  Age: 60 Year
  Sex: Female
  Weight: 60.33 kg

DRUGS (5)
  1. CYTOMEL [Suspect]
     Active Substance: LIOTHYRONINE SODIUM
     Indication: THYROID DISORDER
     Dosage: UNK
     Dates: start: 2008, end: 2017
  2. CYTOMEL [Interacting]
     Active Substance: LIOTHYRONINE SODIUM
     Dosage: UNK UNK, 1X/DAY UNK UNK, 1X/DAY (TAKES A HALF TABLET ONCE DAILY/0. 5 TABLET, 1 IN 1 D)
     Route: 048
     Dates: start: 20170910
  3. CYTOMEL [Interacting]
     Active Substance: LIOTHYRONINE SODIUM
     Dosage: UNK
     Route: 048
  4. SYNTHROID [Interacting]
     Active Substance: LEVOTHYROXINE SODIUM
     Indication: THYROID DISORDER
     Dosage: 100 UG, 1X/DAY
     Route: 048
     Dates: start: 1997, end: 2017
  5. SYNTHROID [Interacting]
     Active Substance: LEVOTHYROXINE SODIUM
     Dosage: 100 UG, 1X/DAY
     Route: 048
     Dates: start: 20170910

REACTIONS (7)
  - Lethargy [Unknown]
  - Intentional product misuse [Unknown]
  - Potentiating drug interaction [Unknown]
  - Liver disorder [Recovered/Resolved]
  - Wrong technique in product usage process [Unknown]
  - Aspartate aminotransferase increased [Unknown]
  - Malaise [Recovered/Resolved]

NARRATIVE: CASE EVENT DATE: 201708
